FAERS Safety Report 5366950-7 (Version None)
Quarter: 2007Q2

REPORT INFORMATION
  Report Type: 
  Country: None (occurrence: None)
  Receive Date: 20070622
  Receipt Date: 20070329
  Transmission Date: 20071010
  Serious: No
  Sender: FDA-Public Use
  Company Number: US-ASTRAZENECA-2007UW06377

PATIENT
  Age: 37 Year
  Sex: Male
  Weight: 88.5 kg

DRUGS (1)
  1. RHINOCORT [Suspect]
     Indication: SEASONAL ALLERGY
     Route: 045
     Dates: start: 20070301

REACTIONS (3)
  - DIZZINESS [None]
  - NAUSEA [None]
  - VERTIGO [None]
